FAERS Safety Report 4863312-3 (Version None)
Quarter: 2005Q4

REPORT INFORMATION
  Report Type: 
  Country: None (occurrence: None)
  Receive Date: 20051219
  Receipt Date: 20051219
  Transmission Date: 20060501
  Serious: Yes (Other)
  Sender: FDA-Public Use
  Company Number: None

PATIENT
  Sex: Female

DRUGS (1)
  1. FLUROX [Suspect]
     Indication: OPHTHALMOLOGICAL EXAMINATION
     Dosage: ONE DROP, OU ONCE EYES

REACTIONS (6)
  - APPLICATION SITE BURN [None]
  - APPLICATION SITE PAIN [None]
  - ERYTHEMA [None]
  - EYELID OEDEMA [None]
  - INJURY CORNEAL [None]
  - PUNCTATE KERATITIS [None]
